FAERS Safety Report 25518517 (Version 1)
Quarter: 2025Q3

REPORT INFORMATION
  Report Type: Spontaneous
  Country: IL (occurrence: IL)
  Receive Date: 20250704
  Receipt Date: 20250704
  Transmission Date: 20251020
  Serious: Yes (Disabling)
  Sender: JOHNSON AND JOHNSON
  Company Number: IL-JNJFOC-20250701709

PATIENT
  Age: 34 Year
  Sex: Female

DRUGS (3)
  1. PALIPERIDONE PALMITATE [Suspect]
     Active Substance: PALIPERIDONE PALMITATE
     Indication: Product used for unknown indication
     Route: 065
     Dates: start: 20210101
  2. PALIPERIDONE PALMITATE [Suspect]
     Active Substance: PALIPERIDONE PALMITATE
  3. PALIPERIDONE PALMITATE [Suspect]
     Active Substance: PALIPERIDONE PALMITATE

REACTIONS (7)
  - Amnesia [Unknown]
  - Fatigue [Unknown]
  - Obesity [Unknown]
  - Metabolic disorder [Unknown]
  - Injury [Unknown]
  - Brain neoplasm [Unknown]
  - Hypersomnia [Unknown]
